FAERS Safety Report 7207474-1 (Version None)
Quarter: 2011Q1

REPORT INFORMATION
  Report Type: 
  Country: None (occurrence: None)
  Receive Date: 20110103
  Receipt Date: 20101222
  Transmission Date: 20110831
  Serious: Yes (Other)
  Sender: FDA-Public Use
  Company Number: JP-SANOFI-AVENTIS-2010SA077767

PATIENT
  Age: 18 Year
  Sex: Female

DRUGS (1)
  1. MYSLEE [Suspect]
     Route: 048

REACTIONS (5)
  - INTENTIONAL OVERDOSE [None]
  - WRIST FRACTURE [None]
  - DIZZINESS [None]
  - FALL [None]
  - LACERATION [None]
